FAERS Safety Report 8185214-X (Version None)
Quarter: 2012Q1

REPORT INFORMATION
  Report Type: 
  Country: None (occurrence: None)
  Receive Date: 20120305
  Receipt Date: 20120223
  Transmission Date: 20120608
  Serious: Yes (Other)
  Sender: FDA-Public Use
  Company Number: PHEH2011US06781

PATIENT
  Sex: Male

DRUGS (2)
  1. TASIGNA [Interacting]
     Indication: CHRONIC MYELOID LEUKAEMIA
     Dosage: 300 MG, BID
     Route: 048
  2. AMIODARONE HCL [Suspect]
     Dosage: UNK UKN, UNK

REACTIONS (9)
  - SQUAMOUS CELL CARCINOMA [None]
  - NEOPLASM MALIGNANT [None]
  - PRURITUS [None]
  - FLUSHING [None]
  - RASH [None]
  - ALOPECIA [None]
  - DRUG INTERACTION [None]
  - ARRHYTHMIA [None]
  - HEADACHE [None]
